FAERS Safety Report 8691865 (Version 2)
Quarter: 2012Q4

REPORT INFORMATION
  Report Type: 
  Country: US (occurrence: US)
  Receive Date: 20120730
  Receipt Date: 20120906
  Transmission Date: 20130627
  Serious: Yes (Death, Hospitalization, Other)
  Sender: FDA-Public Use
  Company Number: US-B.I. PHARMACEUTICALS,INC./RIDGEFIELD-2012-EU-03702GD

PATIENT
  Age: 92 Year
  Sex: Male

DRUGS (11)
  1. DABIGATRAN [Suspect]
     Indication: ATRIAL FIBRILLATION
     Dosage: 300 mg
     Route: 048
  2. PREDNISONE [Suspect]
     Dosage: 10 mg
     Route: 048
  3. FLUTICASONE/SALMETEROL [Suspect]
     Dosage: 2 puffs twice daily
     Route: 055
  4. PROPAFENONE [Suspect]
     Dosage: 450 mg
     Route: 048
  5. ERYTHROMYCIN [Suspect]
  6. OMEPRAZOLE [Concomitant]
     Indication: GASTRIC ULCER
     Dosage: 20 mg
     Route: 048
  7. DIGOXIN [Concomitant]
     Dosage: 0.125 mg
     Route: 048
  8. FINASTERIDE [Concomitant]
     Dosage: 5 mg
     Route: 048
  9. TIOTROPIOM [Concomitant]
     Route: 055
  10. SYNTHROID [Concomitant]
     Dosage: 0.1 mg
     Route: 048
  11. FOLIC ACID [Concomitant]
     Dosage: 1 mg
     Route: 048

REACTIONS (9)
  - Gastrointestinal haemorrhage [Fatal]
  - Rectal haemorrhage [Unknown]
  - Gastric ulcer haemorrhage [Unknown]
  - Haemodynamic instability [Unknown]
  - Blood pressure decreased [Unknown]
  - Haemoglobin decreased [Unknown]
  - Drug interaction [Unknown]
  - Faeces discoloured [Unknown]
  - Asthenia [Unknown]
